FAERS Safety Report 7028793-8 (Version None)
Quarter: 2010Q4

REPORT INFORMATION
  Report Type: 
  Country: None (occurrence: None)
  Receive Date: 20101004
  Receipt Date: 20101004
  Transmission Date: 20110411
  Serious: Yes (Other)
  Sender: FDA-Public Use
  Company Number: None

PATIENT
  Age: 7 Year
  Sex: Female
  Weight: 27.2158 kg

DRUGS (1)
  1. LISTERINE SMART RINSE ANTICAVITY FLOURIDE RINSE JOHNSON + JOHNSON MCNE [Suspect]
     Indication: DENTAL DISORDER PROPHYLAXIS
     Dosage: 10ML TWICE DAILY PO, LESS THAN 2 WEEKS
     Route: 048

REACTIONS (1)
  - TOOTH DISCOLOURATION [None]
